FAERS Safety Report 8469575-X (Version None)
Quarter: 2012Q2

REPORT INFORMATION
  Report Type: 
  Country: None (occurrence: None)
  Receive Date: 20120626
  Receipt Date: 20120619
  Transmission Date: 20120825
  Serious: Yes (Death, Other)
  Sender: FDA-Public Use
  Company Number: FR-JNJFOC-20120409286

PATIENT
  Sex: Male
  Weight: 120 kg

DRUGS (9)
  1. ATENOLOL [Concomitant]
  2. ACETAMINOPHEN [Concomitant]
  3. ASPIRIN [Concomitant]
     Dates: end: 20120401
  4. NITROGLYCERIN [Concomitant]
     Route: 063
  5. LEXOMIL [Concomitant]
  6. XARELTO [Suspect]
     Indication: HIP ARTHROPLASTY
     Route: 048
  7. XARELTO [Suspect]
     Indication: THROMBOSIS PROPHYLAXIS
     Route: 048
  8. CRESTOR [Concomitant]
  9. OMEPRAZOLE [Concomitant]

REACTIONS (3)
  - CARDIAC ARREST [None]
  - MULTI-ORGAN FAILURE [None]
  - PULMONARY EMBOLISM [None]
